FAERS Safety Report 9349547 (Version 1)
Quarter: 2013Q2

REPORT INFORMATION
  Report Type: Spontaneous
  Country: FR (occurrence: FR)
  Receive Date: 20130614
  Receipt Date: 20130614
  Transmission Date: 20140414
  Serious: Yes (Death, Hospitalization)
  Sender: FDA-Public Use
  Company Number: FR-GLAXOSMITHKLINE-B0897121A

PATIENT
  Age: 84 Year
  Sex: Female
  Weight: 70 kg

DRUGS (19)
  1. ARIXTRA [Suspect]
     Indication: THROMBOSIS PROPHYLAXIS
     Dosage: 2.5MG PER DAY
     Route: 065
     Dates: start: 20130122, end: 20130202
  2. KARDEGIC [Suspect]
     Indication: PRODUCT USED FOR UNKNOWN INDICATION
     Dosage: 75MG PER DAY
     Route: 048
     Dates: start: 20121203, end: 20130202
  3. PLAVIX [Suspect]
     Indication: PRODUCT USED FOR UNKNOWN INDICATION
     Dosage: 75MG PER DAY
     Route: 048
     Dates: start: 20121203, end: 20130202
  4. TRIATEC [Concomitant]
     Dosage: 1.25MG PER DAY
     Route: 048
  5. NOVONORM [Concomitant]
     Dosage: .5MG TWICE PER DAY
     Route: 048
     Dates: start: 20121203
  6. MANIDIPINE [Concomitant]
     Dosage: 10MG PER DAY
     Route: 048
  7. PANTOPRAZOLE [Concomitant]
     Dosage: 20MG PER DAY
     Route: 048
  8. DIAMICRON [Concomitant]
     Dosage: 30MG UNKNOWN
     Route: 048
     Dates: end: 20121203
  9. SITAGLIPTIN [Concomitant]
     Dosage: 100MG PER DAY
     Dates: end: 20121203
  10. LOVENOX [Concomitant]
     Dosage: 4000IU PER DAY
  11. TAHOR [Concomitant]
     Dosage: 20MG PER DAY
  12. ROCEPHINE [Concomitant]
     Dosage: 2G PER DAY
  13. PARACETAMOL [Concomitant]
  14. DUROGESIC [Concomitant]
     Dosage: 50MCG EVERY 3 DAYS
  15. FORLAX [Concomitant]
  16. ACUPAN [Concomitant]
  17. TARDYFERON B9 [Concomitant]
  18. ANTIBIOTIC [Concomitant]
     Dates: start: 201211
  19. ULCER DRUG (UNSPECIFIED) [Concomitant]
     Dates: start: 201211

REACTIONS (8)
  - Spontaneous haematoma [Fatal]
  - Haemorrhagic anaemia [Fatal]
  - Haemodynamic instability [Unknown]
  - Disturbance in attention [Unknown]
  - General physical health deterioration [Unknown]
  - Rhabdomyolysis [Unknown]
  - Renal impairment [Unknown]
  - Diabetes mellitus inadequate control [Unknown]
